FAERS Safety Report 24675839 (Version 2)
Quarter: 2024Q4

REPORT INFORMATION
  Report Type: Spontaneous
  Country: ES (occurrence: ES)
  Receive Date: 20241128
  Receipt Date: 20241219
  Transmission Date: 20250115
  Serious: Yes (Hospitalization)
  Sender: TEVA
  Company Number: None

PATIENT
  Age: 28 Year
  Sex: Male
  Weight: 72.5 kg

DRUGS (3)
  1. PAROXETINE [Interacting]
     Active Substance: PAROXETINE
     Indication: Suicide attempt
     Dosage: TIME INTERVAL: TOTAL: PAROXETINE (2586A), 200 MG IN A SINGLE DOSE
     Route: 048
     Dates: start: 20240519, end: 20240519
  2. ALPRAZOLAM [Interacting]
     Active Substance: ALPRAZOLAM
     Indication: Suicide attempt
     Dosage: TIME INTERVAL: TOTAL: ALPRAZOLAM (99A), 10MG IN A SINGLE DOSE.
     Route: 048
     Dates: start: 20240519, end: 20240519
  3. LORATADINE [Interacting]
     Active Substance: LORATADINE
     Indication: Suicide attempt
     Dosage: TIME INTERVAL: TOTAL: LORATADINE (2303A), 100MG IN A SINGLE DOSE.
     Route: 048
     Dates: start: 20240519, end: 20240519

REACTIONS (1)
  - Depressed level of consciousness [Recovered/Resolved]

NARRATIVE: CASE EVENT DATE: 20240519
